FAERS Safety Report 8214737-X (Version None)
Quarter: 2012Q1

REPORT INFORMATION
  Report Type: 
  Country: None (occurrence: None)
  Receive Date: 20120316
  Receipt Date: 20120308
  Transmission Date: 20120608
  Serious: Yes (Hospitalization, Other)
  Sender: FDA-Public Use
  Company Number: NL-GENZYME-CLOF-1002019

PATIENT
  Sex: Female
  Weight: 84 kg

DRUGS (16)
  1. ETOPOSIDE [Suspect]
     Indication: ACUTE LYMPHOCYTIC LEUKAEMIA
     Dosage: 250 MG, QD
     Route: 042
     Dates: start: 20110701, end: 20110708
  2. VITAMIN B COMPLEX CAP [Concomitant]
     Indication: PROPHYLAXIS
     Dosage: 1 DRAGEE, QD
     Route: 048
     Dates: start: 20110630, end: 20110721
  3. CASPOFUNGIN ACETATE [Concomitant]
     Indication: CANDIDIASIS
  4. CEFTAZIDIME [Concomitant]
     Indication: PROPHYLAXIS
     Dosage: 2000 MG, TID
     Route: 042
     Dates: start: 20110714, end: 20110725
  5. CYTARABINE [Suspect]
     Indication: ACUTE LYMPHOCYTIC LEUKAEMIA
     Dosage: 400 MG, QD
     Route: 042
     Dates: start: 20110701, end: 20110708
  6. CASPOFUNGIN ACETATE [Concomitant]
     Indication: MUCOSAL INFLAMMATION
     Dosage: 70 MG, QD
     Route: 042
     Dates: start: 20110714, end: 20110725
  7. METHOTREXATE [Suspect]
     Indication: ACUTE LYMPHOCYTIC LEUKAEMIA
     Dosage: 1000 MG, QD
     Route: 042
     Dates: start: 20110704, end: 20110711
  8. PREDNISONE TAB [Suspect]
     Indication: ACUTE LYMPHOCYTIC LEUKAEMIA
     Dosage: 25 MG, QD
     Route: 037
     Dates: start: 20110701, end: 20110701
  9. CIPROFLOXACIN HCL [Concomitant]
     Indication: PROPHYLAXIS
     Dosage: 500 MG, BID
     Route: 048
     Dates: start: 20110630, end: 20110721
  10. TRAMADOL HCL [Concomitant]
     Indication: MUCOSAL INFLAMMATION
     Dosage: 50 MG, TID
     Route: 048
     Dates: start: 20110713, end: 20110716
  11. VALACICLOVIR [Concomitant]
     Indication: ANTIVIRAL PROPHYLAXIS
     Dosage: 500 MG, BID
     Route: 048
     Dates: start: 20110630, end: 20110716
  12. METHOTREXATE [Suspect]
     Dosage: 15 MG, QD
     Route: 037
     Dates: start: 20110701, end: 20110701
  13. LIDOCAINE [Concomitant]
     Indication: PROCTALGIA
     Dosage: UNK UNK, PRN
     Route: 054
     Dates: start: 20110630, end: 20110727
  14. PAROXETINE HCL [Concomitant]
     Indication: ANTIDEPRESSANT THERAPY
     Dosage: 20 MG, QD
     Route: 048
     Dates: start: 20110630, end: 20110727
  15. EVOLTRA [Suspect]
     Indication: ACUTE LYMPHOCYTIC LEUKAEMIA
     Dosage: 63 MG/DAY, QD
     Route: 042
     Dates: start: 20110513, end: 20110517
  16. LEUCOVORIN CALCIUM [Suspect]
     Indication: ACUTE LYMPHOCYTIC LEUKAEMIA
     Dosage: 45 MG, PRN (BASED ON METHOTREXATE LEVEL IN BLOOD ACCORDING TO PROTOCOL), IV/ PO
     Route: 050
     Dates: start: 20110705, end: 20110706

REACTIONS (1)
  - PULMONARY EMBOLISM [None]
